FAERS Safety Report 16259857 (Version 1)
Quarter: 2019Q2

REPORT INFORMATION
  Report Type: Spontaneous
  Country: PL (occurrence: PL)
  Receive Date: 20190501
  Receipt Date: 20190501
  Transmission Date: 20190711
  Serious: Yes (Other)
  Sender: FDA-Public Use
  Company Number: PL-BEH-2019101772

PATIENT
  Age: 57 Year
  Sex: Male
  Weight: 50 kg

DRUGS (2)
  1. ALBUREX [Suspect]
     Active Substance: ALBUMIN HUMAN
     Indication: HEPATIC CIRRHOSIS
  2. ALBUREX [Suspect]
     Active Substance: ALBUMIN HUMAN
     Indication: HYPOALBUMINAEMIA
     Dosage: 100 ML, UNK
     Route: 042
     Dates: start: 20160814, end: 20160814

REACTIONS (4)
  - Blood pressure increased [Recovered/Resolved]
  - Anaphylactic reaction [Recovered/Resolved]
  - Pyrexia [Recovered/Resolved]
  - Chills [Recovered/Resolved]

NARRATIVE: CASE EVENT DATE: 20160814
